FAERS Safety Report 5316385-8 (Version None)
Quarter: 2007Q2

REPORT INFORMATION
  Report Type: 
  Country: None (occurrence: None)
  Receive Date: 20070430
  Receipt Date: 20070424
  Transmission Date: 20071010
  Serious: Yes (Death, Hospitalization)
  Sender: FDA-Public Use
  Company Number: 200704IM000164

PATIENT
  Age: 63 Year
  Sex: Male
  Weight: 74.3899 kg

DRUGS (13)
  1. INTERFERON GAMMA-1B [Suspect]
     Indication: IDIOPATHIC PULMONARY FIBROSIS
     Dosage: 100 UG, TIW, SUBCUTANEOUS
     Route: 058
     Dates: start: 20051003, end: 20051015
  2. FLOMAX [Concomitant]
  3. ZOCOR [Concomitant]
  4. XANAX [Concomitant]
  5. MECLIZINE [Concomitant]
  6. ZANTAC [Concomitant]
  7. PROPOXYPHENE NAPSYLATE W/ ACETAMINOPHEN [Concomitant]
  8. SINGULAIR [Concomitant]
  9. NASONEX [Concomitant]
  10. ACETAMINOPHEN [Concomitant]
  11. ADVIL [Concomitant]
  12. PAXIL [Concomitant]
  13. ALBUTEROL [Concomitant]

REACTIONS (7)
  - ANXIETY [None]
  - CHILLS [None]
  - DIARRHOEA [None]
  - NAUSEA [None]
  - PNEUMONIA [None]
  - RESPIRATORY FAILURE [None]
  - SEPSIS [None]
